FAERS Safety Report 16580945 (Version 3)
Quarter: 2019Q4

REPORT INFORMATION
  Report Type: Spontaneous
  Country: BR (occurrence: BR)
  Receive Date: 20190716
  Receipt Date: 20191127
  Transmission Date: 20200122
  Serious: Yes (Other)
  Sender: FDA-Public Use
  Company Number: BR-GLAXOSMITHKLINE-BR2019GSK072490

PATIENT
  Age: 69 Year
  Sex: Female
  Weight: 67 kg

DRUGS (1)
  1. NUCALA [Suspect]
     Active Substance: MEPOLIZUMAB
     Indication: ASTHMA
     Dosage: 100 MG, UNK
     Route: 042
     Dates: start: 20190107

REACTIONS (5)
  - Myalgia [Unknown]
  - Asthmatic crisis [Unknown]
  - Inappropriate schedule of product administration [Unknown]
  - Diarrhoea [Unknown]
  - Product dose omission [Unknown]

NARRATIVE: CASE EVENT DATE: 201906
